FAERS Safety Report 6871465-0 (Version None)
Quarter: 2010Q3

REPORT INFORMATION
  Report Type: 
  Country: None (occurrence: None)
  Receive Date: 20100723
  Receipt Date: 20100716
  Transmission Date: 20110219
  Serious: Yes (Other)
  Sender: FDA-Public Use
  Company Number: US-BAYER-201028248NA

PATIENT
  Age: 45 Year
  Sex: Female

DRUGS (2)
  1. AVELOX [Suspect]
     Indication: PRODUCT USED FOR UNKNOWN INDICATION
     Route: 042
     Dates: start: 20100714
  2. AVELOX [Suspect]
     Route: 048
     Dates: start: 20100714

REACTIONS (3)
  - FEELING ABNORMAL [None]
  - PERIPHERAL COLDNESS [None]
  - RESTLESSNESS [None]
